FAERS Safety Report 7468961-4 (Version None)
Quarter: 2011Q2

REPORT INFORMATION
  Report Type: 
  Country: None (occurrence: None)
  Receive Date: 20110429
  Receipt Date: 20110415
  Transmission Date: 20111010
  Serious: Yes (Other)
  Sender: FDA-Public Use
  Company Number: 2011082924

PATIENT

DRUGS (1)
  1. FRAGMIN [Suspect]
     Indication: PROPHYLAXIS
     Dosage: 5000 IU

REACTIONS (1)
  - ARTHRITIS BACTERIAL [None]
